FAERS Safety Report 11315854 (Version 6)
Quarter: 2020Q2

REPORT INFORMATION
  Report Type: Report from Study
  Country: US (occurrence: US)
  Receive Date: 20150728
  Receipt Date: 20200515
  Transmission Date: 20200713
  Serious: Yes (Hospitalization, Other)
  Sender: FDA-Public Use
  Company Number: US-AMGEN-USASP2015075650

PATIENT
  Age: 63 Year
  Sex: Female

DRUGS (1)
  1. ENBREL [Suspect]
     Active Substance: ETANERCEPT
     Indication: RHEUMATOID ARTHRITIS
     Dosage: 50 MG, QWK
     Route: 065
     Dates: start: 20150320

REACTIONS (12)
  - Wound [Unknown]
  - Pulmonary embolism [Recovered/Resolved]
  - Device malfunction [Unknown]
  - Respiratory tract infection [Recovered/Resolved]
  - Infection [Unknown]
  - Pain [Not Recovered/Not Resolved]
  - Dizziness [Unknown]
  - Pneumonia [Recovered/Resolved]
  - Central venous catheter removal [Unknown]
  - Road traffic accident [Recovered/Resolved]
  - Headache [Unknown]
  - Post-traumatic neck syndrome [Not Recovered/Not Resolved]

NARRATIVE: CASE EVENT DATE: 2015
